FAERS Safety Report 13718121 (Version 1)
Quarter: 2017Q3

REPORT INFORMATION
  Report Type: Spontaneous
  Country: JP (occurrence: JP)
  Receive Date: 20170705
  Receipt Date: 20170705
  Transmission Date: 20171127
  Serious: Yes (Other)
  Sender: FDA-Public Use
  Company Number: JP-PFIZER INC-2017279996

PATIENT

DRUGS (2)
  1. ZYVOX [Suspect]
     Active Substance: LINEZOLID
     Indication: BACTERIAL INFECTION
     Dosage: UNK
  2. ZYVOX [Suspect]
     Active Substance: LINEZOLID
     Indication: ENDOCARDITIS

REACTIONS (3)
  - Cardiac failure [Unknown]
  - Condition aggravated [Unknown]
  - Product use in unapproved indication [Unknown]
